FAERS Safety Report 8417022-6 (Version None)
Quarter: 2012Q2

REPORT INFORMATION
  Report Type: 
  Country: None (occurrence: None)
  Receive Date: 20120530
  Receipt Date: 20120515
  Transmission Date: 20120825
  Serious: Yes (Other)
  Sender: FDA-Public Use
  Company Number: FR-SEPTODONT-201200420

PATIENT
  Sex: Female

DRUGS (2)
  1. CRESTOR [Concomitant]
  2. SEPTOCAINE [Suspect]
     Indication: LOCAL ANAESTHESIA
     Dosage: DENTAL
     Route: 004
     Dates: start: 20120217

REACTIONS (13)
  - DYSGEUSIA [None]
  - FATIGUE [None]
  - DYSPHAGIA [None]
  - DYSPNOEA [None]
  - NECK PAIN [None]
  - BLOOD PRESSURE DECREASED [None]
  - BRONCHOSPASM [None]
  - HEART RATE DECREASED [None]
  - FEAR [None]
  - EXOPHTHALMOS [None]
  - ANXIETY [None]
  - ACCIDENTAL EXPOSURE [None]
  - VOCAL CORD PARALYSIS [None]
